FAERS Safety Report 19697141 (Version 3)
Quarter: 2021Q3

REPORT INFORMATION
  Report Type: Report from Study
  Country: JP (occurrence: JP)
  Receive Date: 20210813
  Receipt Date: 20210830
  Transmission Date: 20211014
  Serious: Yes (Hospitalization)
  Sender: FDA-Public Use
  Company Number: JP-ASTELLAS-2021JP015940

PATIENT
  Age: 72 Year
  Sex: Female
  Weight: 53 kg

DRUGS (11)
  1. EPADEL [Concomitant]
     Active Substance: ICOSAPENT
     Indication: THROMBOCYTOSIS
     Dosage: 900 MG, ONCE DAILY, ATER DINNER
     Route: 048
     Dates: start: 2007
  2. PREDONINE [Concomitant]
     Active Substance: PREDNISOLONE
     Indication: PLEURAL EFFUSION
     Dosage: 7.5 MG, ONCE DAILY, AFTER DINNER
     Route: 048
     Dates: start: 20210303
  3. RECALBON [Concomitant]
     Indication: OSTEOPOROSIS PROPHYLAXIS
     Route: 048
     Dates: start: 20210421
  4. KOLANTYL [Concomitant]
     Active Substance: DICYCLOMINE HYDROCHLORIDE
     Indication: GASTROOESOPHAGEAL REFLUX DISEASE
     Dosage: 1 DF, THRICE DAILY, AFTER EVERY MEALS
     Route: 048
     Dates: start: 20210527
  5. HIRUDOID [Concomitant]
     Active Substance: GLYCOSAMINOGLYCANS
     Indication: PRURITUS
     Dosage: UNK UNK, APPROPRIATE TIME
     Route: 061
     Dates: start: 20210226
  6. FUROSEMIDE. [Concomitant]
     Active Substance: FUROSEMIDE
     Indication: OEDEMA PERIPHERAL
     Route: 048
     Dates: start: 20210401
  7. NEXIUM [Concomitant]
     Active Substance: ESOMEPRAZOLE MAGNESIUM
     Indication: GASTROOESOPHAGEAL REFLUX DISEASE
     Dosage: 20 MG, ONCE DAILY, AFTER DINNER
     Route: 048
     Dates: start: 20210527
  8. ROSUVASTATIN. [Concomitant]
     Active Substance: ROSUVASTATIN
     Indication: HYPERLIPIDAEMIA
     Dosage: 2.5 MG, ONCE DAILY, AFTER DINNER
     Route: 048
     Dates: start: 20171224
  9. PREDONINE [Concomitant]
     Active Substance: PREDNISOLONE
     Indication: OEDEMA PERIPHERAL
  10. ASG?22CE [Suspect]
     Active Substance: ENFORTUMAB VEDOTIN
     Indication: NON-SMALL CELL LUNG CANCER
     Route: 065
     Dates: start: 20210325
  11. ZINC. [Concomitant]
     Active Substance: ZINC
     Indication: TASTE DISORDER
     Dosage: 25 MG, TWICE DAILY, IN THE MORNING AND EVENING
     Route: 048
     Dates: start: 20210428

REACTIONS (1)
  - Dizziness postural [Recovering/Resolving]

NARRATIVE: CASE EVENT DATE: 20210811
